FAERS Safety Report 16333571 (Version 1)
Quarter: 2019Q2

REPORT INFORMATION
  Report Type: Spontaneous
  Country: US (occurrence: US)
  Receive Date: 20190520
  Receipt Date: 20190520
  Transmission Date: 20190711
  Serious: No
  Sender: FDA-Public Use
  Company Number: US-UPSHER-SMITH LABORATORIES, LLC-2018USL00264

PATIENT
  Age: 84 Year
  Sex: Female
  Weight: 79.82 kg

DRUGS (24)
  1. FLUTICASONE. [Concomitant]
     Active Substance: FLUTICASONE
  2. VITAMIN C [Concomitant]
     Active Substance: ASCORBIC ACID
     Dosage: 500 MG, 1X/DAY
  3. POTASSIUM CHLORIDE. [Suspect]
     Active Substance: POTASSIUM CHLORIDE
     Indication: BLOOD POTASSIUM DECREASED
     Dosage: 10 MEQ, 1X/DAY
     Route: 048
     Dates: start: 20180530
  4. POTASSIUM CHLORIDE. [Suspect]
     Active Substance: POTASSIUM CHLORIDE
     Dosage: 10 MEQ, 1X/DAY
     Route: 048
  5. MECLIZINE [Concomitant]
     Active Substance: MECLIZINE HYDROCHLORIDE
     Dosage: 25 MG, UP TO 4X/DAY AS NEEDED
  6. PROAIR HFA [Concomitant]
     Active Substance: ALBUTEROL SULFATE
     Dosage: UNK, 3X/DAY
  7. MAGNESIUM SULFATE. [Concomitant]
     Active Substance: MAGNESIUM SULFATE
  8. ZETIA [Concomitant]
     Active Substance: EZETIMIBE
     Dosage: 10 MG, 1X/DAY
  9. COLCHICINE. [Concomitant]
     Active Substance: COLCHICINE
     Dosage: 0.6 MG, AS NEEDED
  10. BENZONATATE. [Concomitant]
     Active Substance: BENZONATATE
     Dosage: 100 MG, UP TO 3X/DAY AS NEEDED
  11. DULERA [Concomitant]
     Active Substance: FORMOTEROL FUMARATE DIHYDRATE\MOMETASONE FUROATE
     Dosage: 200 ?G, 2X/DAY
  12. RANITIDINE. [Concomitant]
     Active Substance: RANITIDINE
     Dosage: 150 MG, 2X/DAY
  13. FUROSEMIDE. [Concomitant]
     Active Substance: FUROSEMIDE
     Dosage: 40 MG, 1X/DAY
  14. MAGNESIUM OXIDE. [Concomitant]
     Active Substance: MAGNESIUM OXIDE
     Dosage: UNK, AS NEEDED
     Route: 042
  15. BRILINTA [Concomitant]
     Active Substance: TICAGRELOR
     Dosage: 90 MG, 2X/DAY
  16. LOSARTAN. [Concomitant]
     Active Substance: LOSARTAN
     Dosage: 50 MG, 1X/DAY
  17. TOPROL XL [Concomitant]
     Active Substance: METOPROLOL SUCCINATE
  18. PRALUENT [Concomitant]
     Active Substance: ALIROCUMAB
     Dosage: 75 MG, 2X/MONTH
     Route: 058
  19. IPRATROPIUM/ALBUTEROL [Concomitant]
     Active Substance: ALBUTEROL\IPRATROPIUM
     Dosage: NEBULIZED, AS NEEDED
     Route: 055
  20. VITAMIN D3 [Concomitant]
     Active Substance: CHOLECALCIFEROL
     Dosage: 2000 IU, 1X/DAY
  21. MULTIVITAMIN [Concomitant]
     Active Substance: VITAMINS
     Dosage: UNK, 1X/DAY
  22. PREDNISONE. [Concomitant]
     Active Substance: PREDNISONE
     Dosage: UNK, AS NEEDED
  23. ASPIRIN. [Concomitant]
     Active Substance: ASPIRIN
     Dosage: 81 MG, 1X/DAY
  24. VITAMIN B COMPLEX [Concomitant]
     Active Substance: CYANOCOBALAMIN\DEXPANTHENOL\NIACINAMIDE\PYRIDOXINE HYDROCHLORIDE\RIBOFLAVIN 5^-PHOSPHATE SODIUM\THIAMINE HYDROCHLORIDE\VITAMIN B COMPLEX
     Dosage: UNK, 1X/DAY

REACTIONS (1)
  - Retching [Not Recovered/Not Resolved]

NARRATIVE: CASE EVENT DATE: 20180530
